FAERS Safety Report 5084067-6 (Version None)
Quarter: 2006Q3

REPORT INFORMATION
  Report Type: 
  Country: None (occurrence: None)
  Receive Date: 20060820
  Receipt Date: 20060811
  Transmission Date: 20061208
  Serious: Yes (Hospitalization)
  Sender: FDA-Public Use
  Company Number: US-ABBOTT-06P-163-0340497-00

PATIENT
  Sex: Female

DRUGS (5)
  1. DEPAKOTE [Suspect]
     Indication: ANXIETY
     Route: 048
     Dates: start: 20060807
  2. DEPAKOTE [Suspect]
     Indication: DEPRESSION
  3. BUPROPION HCL [Concomitant]
     Indication: DEPRESSION
     Route: 048
     Dates: end: 20060808
  4. BUPROPION HCL [Concomitant]
     Route: 048
     Dates: start: 20060809
  5. ADVAIR DISKUS 100/50 [Concomitant]
     Indication: ASTHMA

REACTIONS (3)
  - ANXIETY [None]
  - CHEST PAIN [None]
  - JOINT STIFFNESS [None]
